FAERS Safety Report 21342541 (Version 4)
Quarter: 2023Q2

REPORT INFORMATION
  Report Type: Report from Study
  Country: NL (occurrence: NL)
  Receive Date: 20220916
  Receipt Date: 20230517
  Transmission Date: 20230721
  Serious: Yes (Other)
  Sender: FDA-Public Use
  Company Number: NL-VER-202200112

PATIENT
  Age: 69 Year
  Sex: Male

DRUGS (4)
  1. TRIPTORELIN PAMOATE [Suspect]
     Active Substance: TRIPTORELIN PAMOATE
     Indication: Prostate cancer
     Dosage: 1.00 X PER 3 MAANDEN
     Route: 030
  2. TRIPTORELIN PAMOATE [Suspect]
     Active Substance: TRIPTORELIN PAMOATE
     Indication: Prostate cancer
     Dosage: 1.00 X PER 3 MAANDEN
     Route: 030
  3. TRIPTORELIN PAMOATE [Suspect]
     Active Substance: TRIPTORELIN PAMOATE
     Indication: Prostate cancer
     Dosage: SOLVENT 2ML (1ST), SUSPENSION FOR INJECTION. ??OTHER BATCH/LOT NUMBERS REPORTED WERE P25185 ( EXPIRA
     Route: 030
     Dates: start: 20200302
  4. TRIPTORELIN PAMOATE [Suspect]
     Active Substance: TRIPTORELIN PAMOATE
     Indication: Prostate cancer
     Dosage: SOLVENT 2ML (1ST), SUSPENSION FOR INJECTION. ??OTHER BATCH/LOT NUMBERS REPORTED WERE P25185 ( EXPIRA
     Route: 030
     Dates: start: 20200302

REACTIONS (2)
  - Haemoptysis [Not Recovered/Not Resolved]
  - Prostatic specific antigen increased [Not Recovered/Not Resolved]

NARRATIVE: CASE EVENT DATE: 20230308
